FAERS Safety Report 5977018-0 (Version None)
Quarter: 2008Q4

REPORT INFORMATION
  Report Type: 
  Country: None (occurrence: None)
  Receive Date: 20081202
  Receipt Date: 20081202
  Transmission Date: 20090506
  Serious: Yes (Hospitalization)
  Sender: FDA-Public Use
  Company Number: None

PATIENT
  Age: 70 Year
  Sex: Male
  Weight: 146.96 kg

DRUGS (2)
  1. SULFAMETHOXAZOLE AND TRIMETHOPRIM [Suspect]
     Indication: STAPHYLOCOCCAL OSTEOMYELITIS
     Dosage: 1 TAB BID PO
     Route: 048
     Dates: start: 20080731, end: 20081110
  2. VALSARTAN [Suspect]
     Indication: HYPERTENSION
     Dosage: 160 MG EVERY DAY PO
     Route: 048
     Dates: start: 20070615, end: 20081107

REACTIONS (7)
  - BLOOD CREATININE INCREASED [None]
  - BLOOD UREA INCREASED [None]
  - DIABETIC NEPHROPATHY [None]
  - ELECTROCARDIOGRAM CHANGE [None]
  - HYPERKALAEMIA [None]
  - METABOLIC ACIDOSIS [None]
  - RENAL TUBULAR ACIDOSIS [None]
